FAERS Safety Report 8871627 (Version 3)
Quarter: 2014Q1

REPORT INFORMATION
  Report Type: Spontaneous
  Country: US (occurrence: US)
  Receive Date: 20121023
  Receipt Date: 20140214
  Transmission Date: 20141002
  Serious: Yes (Hospitalization, Disabling, Other)
  Sender: FDA-Public Use
  Company Number: US-ASTELLAS-2012US007580

PATIENT
  Age: 63 Year
  Sex: Male
  Weight: 112 kg

DRUGS (4)
  1. PROGRAF [Suspect]
     Indication: RENAL TRANSPLANT
     Dosage: 2 MG, BID
     Route: 048
     Dates: start: 19990528
  2. PREDNISONE [Concomitant]
     Indication: RENAL TRANSPLANT
     Dosage: 5 MG, UID/QD
     Route: 048
     Dates: start: 19990522
  3. METOPROLOL [Concomitant]
     Indication: CARDIAC DISORDER
     Dosage: 12.5 MG, UID/QD
     Route: 048
     Dates: start: 201101
  4. CELLCEPT                           /01275102/ [Concomitant]
     Indication: RENAL TRANSPLANT
     Dosage: 500 MG, BID
     Route: 048
     Dates: start: 19990522

REACTIONS (4)
  - Cholelithiasis [Unknown]
  - Hospitalisation [Unknown]
  - Cerebrovascular accident [Recovered/Resolved with Sequelae]
  - Transient ischaemic attack [Unknown]
